FAERS Safety Report 10956246 (Version 1)
Quarter: 2015Q1

REPORT INFORMATION
  Report Type: Spontaneous
  Country: CN (occurrence: CN)
  Receive Date: 20150326
  Receipt Date: 20150326
  Transmission Date: 20150721
  Serious: Yes (Other)
  Sender: FDA-Public Use
  Company Number: CN-MERCK-1503CHN008133

PATIENT
  Age: 89 Year
  Sex: Male

DRUGS (3)
  1. ISOSORBIDE MONONITRATE. [Concomitant]
     Active Substance: ISOSORBIDE MONONITRATE
     Indication: CARDIOMEGALY
     Dosage: 25 MG, QD
     Route: 041
     Dates: start: 20140410, end: 20140416
  2. MUCOSOLVAN [Concomitant]
     Active Substance: AMBROXOL\CLENBUTEROL
     Indication: SPUTUM ABNORMAL
     Dosage: 30 MG, BID
     Route: 041
     Dates: start: 20140410, end: 20140416
  3. INVANZ [Suspect]
     Active Substance: ERTAPENEM SODIUM
     Indication: INFECTION
     Dosage: 1 G, QD
     Route: 041
     Dates: start: 20140414, end: 20140416

REACTIONS (1)
  - Epilepsy [Recovering/Resolving]

NARRATIVE: CASE EVENT DATE: 20140416
